FAERS Safety Report 10184104 (Version 1)
Quarter: 2014Q2

REPORT INFORMATION
  Report Type: Spontaneous
  Country: US (occurrence: US)
  Receive Date: 20140520
  Receipt Date: 20140520
  Transmission Date: 20141212
  Serious: No
  Sender: FDA-Public Use
  Company Number: US-ASTRAZENECA-2013SE48746

PATIENT
  Age: 72 Year
  Sex: Female
  Weight: 46.7 kg

DRUGS (5)
  1. BUDESONIDE [Suspect]
     Indication: COLITIS MICROSCOPIC
     Route: 048
     Dates: start: 2007
  2. SYMVASTATIN [Concomitant]
     Indication: ARTERIAL DISORDER
     Route: 048
     Dates: start: 201301
  3. ASPIRIN [Concomitant]
     Indication: ANGIOPATHY
     Route: 048
     Dates: start: 201301
  4. HYDROCHLOROTHORAZIDE [Concomitant]
     Indication: HYPERTENSION
     Route: 048
     Dates: start: 1999
  5. AMLODOPINE BESYLATE [Concomitant]
     Indication: HYPERTENSION
     Route: 048
     Dates: start: 1999

REACTIONS (7)
  - Diarrhoea [Recovered/Resolved]
  - Abdominal distension [Recovered/Resolved]
  - Flatulence [Recovered/Resolved]
  - Arterial stenosis [Not Recovered/Not Resolved]
  - Contusion [Not Recovered/Not Resolved]
  - Intentional product misuse [Unknown]
  - Drug dose omission [Unknown]
